FAERS Safety Report 7821479-9 (Version None)
Quarter: 2011Q4

REPORT INFORMATION
  Report Type: 
  Country: None (occurrence: None)
  Receive Date: 20111018
  Receipt Date: 20020905
  Transmission Date: 20120403
  Serious: Yes (Congenital Anomaly)
  Sender: FDA-Public Use
  Company Number: PHHY2002CH02526

PATIENT

DRUGS (1)
  1. AMOXICILLIN AND CLAVULANATE POTASSIUM [Suspect]
     Indication: PYELONEPHRITIS
     Route: 064

REACTIONS (2)
  - CLEFT LIP [None]
  - MATERNAL EXPOSURE DURING PREGNANCY [None]
